FAERS Safety Report 11970032 (Version 1)
Quarter: 2016Q1

REPORT INFORMATION
  Report Type: Spontaneous
  Country: US (occurrence: US)
  Receive Date: 20160128
  Receipt Date: 20160128
  Transmission Date: 20160526
  Serious: Yes (Hospitalization, Other)
  Sender: FDA-Public Use
  Company Number: US-TEVA-628308USA

PATIENT
  Age: 57 Year
  Sex: Female

DRUGS (13)
  1. LAMOTRIGINE. [Suspect]
     Active Substance: LAMOTRIGINE
     Indication: PAIN
     Dosage: 200 MILLIGRAM DAILY;
     Route: 048
     Dates: start: 2005
  2. LAMICTAL [Suspect]
     Active Substance: LAMOTRIGINE
     Indication: SEIZURE
     Route: 048
     Dates: start: 2006
  3. ATORVASTATIN [Concomitant]
     Active Substance: ATORVASTATIN
  4. LOSARTAN. [Concomitant]
     Active Substance: LOSARTAN
  5. LAMICTAL [Suspect]
     Active Substance: LAMOTRIGINE
     Indication: PAIN
     Route: 065
     Dates: start: 2005
  6. LAMICTAL [Suspect]
     Active Substance: LAMOTRIGINE
     Route: 065
     Dates: start: 2005
  7. FAMOTIDINE. [Concomitant]
     Active Substance: FAMOTIDINE
  8. AMLODIPINE [Concomitant]
     Active Substance: AMLODIPINE BESYLATE
  9. LAMICTAL [Suspect]
     Active Substance: LAMOTRIGINE
     Indication: NERVOUSNESS
     Route: 065
     Dates: start: 2006
  10. LIPITOR [Suspect]
     Active Substance: ATORVASTATIN CALCIUM
     Indication: PRODUCT USED FOR UNKNOWN INDICATION
     Route: 065
  11. LAMICTAL [Suspect]
     Active Substance: LAMOTRIGINE
     Route: 065
  12. FERROUS SULFATE [Concomitant]
     Active Substance: FERROUS SULFATE\FERROUS SULFATE, DRIED
  13. METFORMIN [Concomitant]
     Active Substance: METFORMIN HYDROCHLORIDE

REACTIONS (22)
  - Pain [Not Recovered/Not Resolved]
  - Hospitalisation [Unknown]
  - Adverse event [Unknown]
  - Emotional disorder [Unknown]
  - Coma [Unknown]
  - Dry mouth [Not Recovered/Not Resolved]
  - Memory impairment [Unknown]
  - Drug dependence [Unknown]
  - Hysterectomy [Unknown]
  - Dysgeusia [Not Recovered/Not Resolved]
  - Diabetes mellitus [Not Recovered/Not Resolved]
  - Headache [Not Recovered/Not Resolved]
  - Overdose [Unknown]
  - Expired product administered [Unknown]
  - Seizure [Recovering/Resolving]
  - Hospitalisation [Unknown]
  - Drug ineffective [Unknown]
  - Visual acuity reduced [Unknown]
  - Adverse event [Unknown]
  - Pain [Not Recovered/Not Resolved]
  - Breath odour [Not Recovered/Not Resolved]
  - Off label use [Unknown]

NARRATIVE: CASE EVENT DATE: 201407
